FAERS Safety Report 16975817 (Version 1)
Quarter: 2019Q4

REPORT INFORMATION
  Report Type: Spontaneous
  Country: JP (occurrence: JP)
  Receive Date: 20191030
  Receipt Date: 20191030
  Transmission Date: 20200122
  Serious: Yes (Hospitalization)
  Sender: FDA-Public Use
  Company Number: JP-ROCHE-2453999

PATIENT
  Age: 80 Year
  Sex: Female

DRUGS (8)
  1. ACTEMRA [Suspect]
     Active Substance: TOCILIZUMAB
     Indication: RHEUMATOID ARTHRITIS
     Route: 058
  2. CELECOX [Concomitant]
     Active Substance: CELECOXIB
     Dosage: AFTER THE BREAKFAST
     Route: 048
  3. FOSRENOL [Concomitant]
     Active Substance: LANTHANUM CARBONATE
     Dosage: BEFORE THE MEAL IN THE MORNING AND EVENING
     Route: 048
  4. PREDNISOLONE. [Concomitant]
     Active Substance: PREDNISOLONE
     Dosage: AFTER THE BREAKFAST
     Route: 048
  5. CRESTOR [Concomitant]
     Active Substance: ROSUVASTATIN CALCIUM
     Dosage: AFTER THE SUPPER
     Route: 048
  6. PROTECADIN [Concomitant]
     Active Substance: LAFUTIDINE
     Dosage: AFTER THE SUPPER
     Route: 048
  7. CALBLOCK [Concomitant]
     Active Substance: AZELNIDIPINE
     Dosage: AFTER THE BREAKFAST
     Route: 048
  8. KAYEXALATE [Concomitant]
     Active Substance: SODIUM POLYSTYRENE SULFONATE
     Dosage: AFTER THE MEAL IN THE MORNING AND EVENING
     Route: 048

REACTIONS (2)
  - Altered state of consciousness [Unknown]
  - Interstitial lung disease [Unknown]

NARRATIVE: CASE EVENT DATE: 2019
